FAERS Safety Report 22368745 (Version 1)
Quarter: 2023Q2

REPORT INFORMATION
  Report Type: Spontaneous
  Country: US (occurrence: US)
  Receive Date: 20230525
  Receipt Date: 20230525
  Transmission Date: 20230722
  Serious: Yes (Hospitalization, Other)
  Sender: FDA-Public Use
  Company Number: US-BRISTOL-MYERS SQUIBB COMPANY-2023-071509

PATIENT
  Sex: Male
  Weight: 98.87 kg

DRUGS (2)
  1. SPRYCEL [Suspect]
     Active Substance: DASATINIB
     Indication: Product used for unknown indication
  2. JAKAFI [Suspect]
     Active Substance: RUXOLITINIB
     Indication: Graft versus host disease
     Route: 048
     Dates: start: 20230412

REACTIONS (3)
  - Weight increased [Recovering/Resolving]
  - Graft versus host disease in liver [Recovering/Resolving]
  - Fluid retention [Recovering/Resolving]
